FAERS Safety Report 11788253 (Version 1)
Quarter: 2015Q4

REPORT INFORMATION
  Report Type: Spontaneous
  Country: US (occurrence: US)
  Receive Date: 20151201
  Receipt Date: 20151201
  Transmission Date: 20160305
  Serious: No
  Sender: FDA-Public Use
  Company Number: US-009507513-1511USA012611

PATIENT
  Sex: Male

DRUGS (1)
  1. PREGNYL [Suspect]
     Active Substance: CHORIOGONADOTROPIN ALFA
     Indication: ENDOCRINE DISORDER

REACTIONS (3)
  - Incorrect product storage [Unknown]
  - No adverse event [Unknown]
  - Product use issue [Unknown]
